FAERS Safety Report 4747313-1 (Version None)
Quarter: 2005Q3

REPORT INFORMATION
  Report Type: 
  Country: None (occurrence: None)
  Receive Date: 20050816
  Receipt Date: 20050804
  Transmission Date: 20060218
  Serious: Yes (Other)
  Sender: FDA-Public Use
  Company Number: 2005111694

PATIENT
  Age: 62 Year
  Sex: Female
  Weight: 84.8226 kg

DRUGS (2)
  1. NEURONTIN [Suspect]
     Indication: NEUROPATHY
  2. XANAX [Suspect]
     Indication: PANIC ATTACK

REACTIONS (9)
  - ANXIETY [None]
  - CONDITION AGGRAVATED [None]
  - EXOSTOSIS [None]
  - FATIGUE [None]
  - FIBROMYALGIA [None]
  - MUSCLE CONTRACTURE [None]
  - PAIN [None]
  - PANIC ATTACK [None]
  - STRESS [None]
